FAERS Safety Report 8072779-1 (Version None)
Quarter: 2011Q4

REPORT INFORMATION
  Report Type: 
  Country: None (occurrence: None)
  Receive Date: 20111221
  Receipt Date: 20110124
  Transmission Date: 20120403
  Serious: Yes (Other)
  Sender: FDA-Public Use
  Company Number: PHHY2010US51593

PATIENT
  Age: 54 Year
  Sex: Female
  Weight: 60.6 kg

DRUGS (1)
  1. EXJADE [Suspect]
     Indication: SERUM FERRITIN INCREASED
     Dosage: 1000 MG DAILY, ORAL
     Route: 048
     Dates: start: 20100715, end: 20100828

REACTIONS (3)
  - DIARRHOEA [None]
  - ABDOMINAL PAIN [None]
  - BLOOD CREATININE INCREASED [None]
